FAERS Safety Report 20637233 (Version 1)
Quarter: 2022Q1

REPORT INFORMATION
  Report Type: Report from Study
  Country: DE (occurrence: None)
  Receive Date: 20220325
  Receipt Date: 20220325
  Transmission Date: 20220423
  Serious: Yes (Hospitalization)
  Sender: FDA-Public Use
  Company Number: DE-ROCHE-3053298

PATIENT
  Age: 67 Year
  Sex: Female
  Weight: 62.4 kg

DRUGS (11)
  1. ATEZOLIZUMAB [Suspect]
     Active Substance: ATEZOLIZUMAB
     Indication: Triple negative breast cancer
     Dosage: DATE OF LAST DOSE PRIOR TO SAE: 04/FEB/2022
     Route: 041
     Dates: start: 20211126
  2. PACLITAXEL [Suspect]
     Active Substance: PACLITAXEL
     Indication: Triple negative breast cancer
     Dosage: DATE OF LAST DOSE PRIOR TO SAE: 04/FEB/2022
     Route: 042
     Dates: start: 20211126
  3. PACLITAXEL [Suspect]
     Active Substance: PACLITAXEL
     Route: 042
     Dates: start: 20220218
  4. CARBOPLATIN [Suspect]
     Active Substance: CARBOPLATIN
     Indication: Triple negative breast cancer
     Dosage: DATE OF LAST DOSE PRIOR TO SAE: 04/FEB/2022
     Route: 042
     Dates: start: 20211126
  5. CARBOPLATIN [Suspect]
     Active Substance: CARBOPLATIN
     Route: 042
     Dates: start: 20220218
  6. CIMETIDINE [Concomitant]
     Active Substance: CIMETIDINE
     Dates: start: 20211126
  7. CLEMASTINE [Concomitant]
     Active Substance: CLEMASTINE
     Dates: start: 20211126
  8. DEXAMETHASONE [Concomitant]
     Active Substance: DEXAMETHASONE
     Dates: start: 20211126
  9. METHOTREXATE [Concomitant]
     Active Substance: METHOTREXATE
     Dates: start: 20150715
  10. FILGRASTIM [Concomitant]
     Active Substance: FILGRASTIM
     Route: 058
     Dates: start: 20220103, end: 20220103
  11. FILGRASTIM [Concomitant]
     Active Substance: FILGRASTIM
     Dates: start: 20220111, end: 20220111

REACTIONS (1)
  - Anaemia [Unknown]

NARRATIVE: CASE EVENT DATE: 20220215
